FAERS Safety Report 17568383 (Version 2)
Quarter: 2020Q1

REPORT INFORMATION
  Report Type: Spontaneous
  Country: GB (occurrence: GB)
  Receive Date: 20200320
  Receipt Date: 20200330
  Transmission Date: 20200409
  Serious: Yes (Disabling)
  Sender: FDA-Public Use
  Company Number: GB-ALLERGAN-2012143US

PATIENT
  Sex: Male

DRUGS (3)
  1. DEXAMETHASONE. [Suspect]
     Active Substance: DEXAMETHASONE
     Indication: STEROID THERAPY
     Dosage: 1 ML, SINGLE
     Route: 065
     Dates: start: 201611
  2. OZURDEX [Suspect]
     Active Substance: DEXAMETHASONE
     Indication: STEROID THERAPY
     Dosage: 0.7 MG, SINGLE
     Route: 031
  3. KENALOG [Suspect]
     Active Substance: TRIAMCINOLONE ACETONIDE
     Indication: STEROID THERAPY
     Dosage: UNK UNK, SINGLE
     Route: 065
     Dates: start: 201705

REACTIONS (7)
  - Cardiac disorder [Unknown]
  - Off label use [Unknown]
  - Lung disorder [Unknown]
  - Impaired quality of life [Unknown]
  - Blindness [Unknown]
  - Immunodeficiency [Unknown]
  - Mobility decreased [Unknown]
